FAERS Safety Report 16987357 (Version 1)
Quarter: 2019Q4

REPORT INFORMATION
  Report Type: Spontaneous
  Country: US (occurrence: US)
  Receive Date: 20191102
  Receipt Date: 20191102
  Transmission Date: 20200122
  Serious: Yes (Hospitalization)
  Sender: FDA-Public Use
  Company Number: US-ZYDUS-042697

PATIENT
  Age: 68 Year
  Sex: Male

DRUGS (1)
  1. DOXYCYCLINE. [Suspect]
     Active Substance: DOXYCYCLINE
     Indication: HELICOBACTER INFECTION

REACTIONS (2)
  - Chronic gastritis [Unknown]
  - Gastrointestinal mucosal necrosis [Unknown]
